FAERS Safety Report 6508794-6 (Version None)
Quarter: 2009Q4

REPORT INFORMATION
  Report Type: 
  Country: None (occurrence: None)
  Receive Date: 20091221
  Receipt Date: 20090630
  Transmission Date: 20100525
  Serious: No
  Sender: FDA-Public Use
  Company Number: US-ASTRAZENECA-2009SE07869

PATIENT
  Age: 46 Year
  Sex: Male
  Weight: 97.5 kg

DRUGS (9)
  1. CRESTOR [Suspect]
     Indication: BLOOD CHOLESTEROL INCREASED
     Route: 048
     Dates: start: 20090615
  2. NIASPAN [Suspect]
     Route: 048
     Dates: start: 20090615
  3. EZETIMIBE [Suspect]
     Dates: start: 20090615
  4. VENLAFAXINE [Concomitant]
     Indication: DEPRESSION
  5. OMEPRAZOLE MAGNESIUM [Concomitant]
     Indication: DYSPEPSIA
  6. OMEPRAZOLE MAGNESIUM [Concomitant]
  7. FISH OIL [Concomitant]
     Indication: BLOOD CHOLESTEROL INCREASED
  8. ACETYLSALICYLIC ACID [Concomitant]
     Indication: COAGULOPATHY
  9. MULTI-VITAMIN [Concomitant]

REACTIONS (4)
  - ARTHRALGIA [None]
  - DECREASED APPETITE [None]
  - MOOD ALTERED [None]
  - MUSCULOSKELETAL STIFFNESS [None]
